FAERS Safety Report 7795297-4 (Version None)
Quarter: 2011Q4

REPORT INFORMATION
  Report Type: 
  Country: None (occurrence: None)
  Receive Date: 20111004
  Receipt Date: 20110929
  Transmission Date: 20120403
  Serious: Yes (Other)
  Sender: FDA-Public Use
  Company Number: PHHY2011NL60386

PATIENT
  Sex: Male

DRUGS (15)
  1. ZOMETA [Suspect]
     Dosage: 4 MG/5ML, CONCENTRATE FOR SOLUTION FOR INTRAVENOUS INFUSION ONCE PER 28 DAYS
     Route: 042
     Dates: start: 20110607
  2. ZOMETA [Suspect]
     Dosage: 4 MG/5ML, CONCENTRATE FOR SOLUTION FOR INTRAVENOUS INFUSION ONCE PER 28 DAYS
     Route: 042
     Dates: start: 20110705
  3. CALCIUM CARBONATE [Concomitant]
     Dosage: UNK UKN, UNK
  4. TAMSULOSIN HCL [Concomitant]
     Dosage: UNK UKN, UNK
  5. CASODEX [Concomitant]
     Dosage: UNK UKN, UNK
  6. ZOMETA [Suspect]
     Dosage: 4 MG/5ML, CONCENTRATE FOR SOLUTION FOR INTRAVENOUS INFUSION ONCE PER 28 DAYS
     Route: 042
     Dates: start: 20110802
  7. ZOLADEX [Concomitant]
     Dosage: UNK UKN, UNK
  8. METAMUCIL-2 [Concomitant]
     Dosage: UNK UKN, UNK
  9. ESTRACYT [Concomitant]
     Dosage: UNK UKN, UNK
  10. METOPROLOL SUCCINATE [Concomitant]
     Dosage: UNK UKN, UNK
  11. PREDNISOLONE [Concomitant]
     Dosage: UNK UKN, UNK
  12. ZOMETA [Suspect]
     Indication: PROSTATE CANCER METASTATIC
     Dosage: 4 MG
     Route: 042
     Dates: start: 20100921
  13. ASCAL [Concomitant]
     Dosage: UNK UKN, UNK
  14. ROSUVASTATIN CALCIUM [Concomitant]
     Dosage: UNK UKN, UNK
  15. HYDROCHLOROTHIAZIDE [Concomitant]
     Dosage: UNK UKN, UNK

REACTIONS (6)
  - GAIT DISTURBANCE [None]
  - ASTHENIA [None]
  - DEPRESSION [None]
  - MALAISE [None]
  - BACK PAIN [None]
  - FATIGUE [None]
